FAERS Safety Report 8930038 (Version 1)
Quarter: 2012Q4

REPORT INFORMATION
  Report Type: Report from Study
  Country: ES (occurrence: ES)
  Receive Date: 20121128
  Receipt Date: 20121128
  Transmission Date: 20130627
  Serious: Yes (Hospitalization, Other)
  Sender: FDA-Public Use
  Company Number: ES-ROCHE-1157317

PATIENT
  Age: 49 Year

DRUGS (21)
  1. VALGANCICLOVIR [Suspect]
     Indication: PROPHYLAXIS
     Route: 065
  2. BASILIXIMAB [Concomitant]
     Indication: IMMUNOSUPPRESSION
     Route: 065
  3. PREDNISONE [Concomitant]
     Indication: IMMUNOSUPPRESSION
     Route: 065
  4. TMP-SMZ [Concomitant]
     Indication: PROPHYLAXIS
  5. AMPHOTERICIN [Concomitant]
     Indication: PROPHYLAXIS
  6. ISONIAZIDE [Concomitant]
     Indication: PROPHYLAXIS
  7. TACROLIMUS [Concomitant]
  8. METHYLPREDNISOLONE [Concomitant]
     Route: 040
  9. EVEROLIMUS [Concomitant]
     Route: 065
  10. RITUXIMAB [Concomitant]
     Route: 065
  11. NORPRAMIN [Concomitant]
  12. TARDYFERON [Concomitant]
  13. FUROSEMIDE [Concomitant]
     Route: 065
  14. ASA [Concomitant]
  15. DOXAZOSIN [Concomitant]
     Route: 065
  16. CALCIUM [Concomitant]
  17. VITAMIN D [Concomitant]
  18. ETIDRONATE [Concomitant]
  19. ADVAGRAF [Concomitant]
     Route: 065
  20. CSA [Concomitant]
     Indication: IMMUNOSUPPRESSION
  21. MYCOPHENOLATE MOFETIL [Concomitant]
     Indication: IMMUNOSUPPRESSION

REACTIONS (5)
  - Cytomegalovirus infection [Unknown]
  - Asthenia [Unknown]
  - Weight increased [Unknown]
  - Oedema peripheral [Unknown]
  - Cardiac failure congestive [Unknown]
